FAERS Safety Report 5085639-5 (Version None)
Quarter: 2006Q3

REPORT INFORMATION
  Report Type: 
  Country: None (occurrence: None)
  Receive Date: 20060822
  Receipt Date: 20060816
  Transmission Date: 20061208
  Serious: Yes (Hospitalization, Disabling)
  Sender: FDA-Public Use
  Company Number: US-SANOFI-SYNTHELABO-A03200605178

PATIENT
  Age: 77 Year
  Sex: Male

DRUGS (7)
  1. FLUOROURACIL [Suspect]
     Indication: COLON CANCER
     Route: 042
     Dates: start: 20060731, end: 20060731
  2. ELOXATIN [Suspect]
     Indication: COLON CANCER
     Route: 042
     Dates: start: 20060731, end: 20060731
  3. TOPROL-XL [Concomitant]
     Dosage: UNK
     Route: 048
  4. ARANESP [Concomitant]
     Route: 058
  5. METFORMIN [Concomitant]
     Dosage: UNK
     Route: 048
  6. GLIPIZIDE [Concomitant]
     Dosage: UNK
     Route: 048
  7. ACTOPLUS MET [Concomitant]
     Dosage: UNK
     Route: 048

REACTIONS (4)
  - DYSPHAGIA [None]
  - FALL [None]
  - GUILLAIN-BARRE SYNDROME [None]
  - NEUROPATHY [None]
